FAERS Safety Report 11571750 (Version 1)
Quarter: 2015Q3

REPORT INFORMATION
  Report Type: Spontaneous
  Country: US (occurrence: US)
  Receive Date: 20150916
  Receipt Date: 20150916
  Transmission Date: 20151125
  Serious: No
  Sender: FDA-Public Use
  Company Number: US-ELI_LILLY_AND_COMPANY-US200909006960

PATIENT
  Sex: Female

DRUGS (2)
  1. FORTEO [Suspect]
     Active Substance: TERIPARATIDE
     Dates: start: 20090916
  2. FORTEO [Suspect]
     Active Substance: TERIPARATIDE
     Dates: start: 20090925

REACTIONS (6)
  - Nausea [Unknown]
  - Feeling abnormal [Unknown]
  - Influenza [Unknown]
  - Depressed mood [Unknown]
  - Dizziness [Unknown]
  - Malaise [Unknown]

NARRATIVE: CASE EVENT DATE: 200909
